FAERS Safety Report 4428301-1 (Version None)
Quarter: 2004Q3

REPORT INFORMATION
  Report Type: 
  Country: None (occurrence: None)
  Receive Date: 20040813
  Receipt Date: 20040805
  Transmission Date: 20050211
  Serious: Yes (Hospitalization)
  Sender: FDA-Public Use
  Company Number: 2004-08-0050

PATIENT
  Age: 49 Year
  Sex: Male
  Weight: 90 kg

DRUGS (2)
  1. PEG-INTRON [Suspect]
     Indication: MULTIPLE MYELOMA
     Dosage: 48 MCG QWK SUBCUTANEOUS
     Route: 058
     Dates: start: 20040501
  2. ZOLENDRONATE INJECTABLE [Concomitant]

REACTIONS (1)
  - HERPES ZOSTER [None]
